FAERS Safety Report 6708929-6 (Version None)
Quarter: 2010Q2

REPORT INFORMATION
  Report Type: 
  Country: None (occurrence: None)
  Receive Date: 20100504
  Receipt Date: 20091216
  Transmission Date: 20101027
  Serious: Yes (Other)
  Sender: FDA-Public Use
  Company Number: DE-BAYER-200943066GPV

PATIENT
  Age: 37 Year
  Sex: Female
  Weight: 102 kg

DRUGS (1)
  1. MIRENA [Suspect]
     Indication: CONTRACEPTION
     Route: 015

REACTIONS (14)
  - AGGRESSION [None]
  - ARRHYTHMIA [None]
  - FATIGUE [None]
  - HOT FLUSH [None]
  - HYPERHIDROSIS [None]
  - IRRITABILITY [None]
  - LISTLESS [None]
  - LOSS OF LIBIDO [None]
  - NAUSEA [None]
  - PALPITATIONS [None]
  - PANIC ATTACK [None]
  - SLEEP DISORDER [None]
  - UPPER AIRWAY OBSTRUCTION [None]
  - WEIGHT INCREASED [None]
